FAERS Safety Report 18669523 (Version 1)
Quarter: 2020Q4

REPORT INFORMATION
  Report Type: Spontaneous
  Country: GB (occurrence: GB)
  Receive Date: 20201228
  Receipt Date: 20201228
  Transmission Date: 20210114
  Serious: Yes (Other)
  Sender: FDA-Public Use
  Company Number: GB-TEVA-2020-GB-1862334

PATIENT
  Age: 20 Year
  Sex: Male
  Weight: 44 kg

DRUGS (3)
  1. CO-AMOXICLAV [Suspect]
     Active Substance: AMOXICILLIN\CLAVULANATE POTASSIUM
     Dosage: 250MG/125MG , UNIT DOSE :  3 DF ,SUGAR FREE
     Dates: start: 20201127
  2. FLUCLOXACILLIN [Concomitant]
     Active Substance: FLUCLOXACILLIN
     Dosage: UNIT DOSE :  4 DF
     Dates: start: 20200921, end: 20200928
  3. TERBINAFINE. [Concomitant]
     Active Substance: TERBINAFINE
     Dosage: APPLY , UNIT DOSE : 2 DF
     Dates: start: 20201127

REACTIONS (5)
  - Penis disorder [Unknown]
  - Lip swelling [Unknown]
  - Type IV hypersensitivity reaction [Recovering/Resolving]
  - Urticaria [Unknown]
  - Rash maculo-papular [Unknown]

NARRATIVE: CASE EVENT DATE: 20201205
